FAERS Safety Report 6462136-3 (Version None)
Quarter: 2009Q4

REPORT INFORMATION
  Report Type: 
  Country: None (occurrence: None)
  Receive Date: 20091130
  Receipt Date: 20091028
  Transmission Date: 20100525
  Serious: No
  Sender: FDA-Public Use
  Company Number: US-BAYER-200916204BCC

PATIENT
  Age: 55 Year
  Sex: Female
  Weight: 66 kg

DRUGS (2)
  1. ALEVE [Suspect]
     Indication: ARTHRITIS
     Dosage: TOTAL DAILY DOSE: 440 MG  UNIT DOSE: 220 MG
     Route: 048
     Dates: start: 20091027
  2. LEVOTHROID [Concomitant]
     Route: 065

REACTIONS (2)
  - ABDOMINAL PAIN [None]
  - INSOMNIA [None]
